FAERS Safety Report 14900083 (Version 1)
Quarter: 2020Q3

REPORT INFORMATION
  Report Type: Spontaneous
  Country: IT (occurrence: IT)
  Receive Date: 20180516
  Receipt Date: 20180516
  Transmission Date: 20201105
  Serious: Yes (Other)
  Sender: FDA-Public Use
  Company Number: IT-ALKEM LABORATORIES LIMITED-IT-ALKEM-2018-02982

PATIENT
  Age: 46 Year
  Sex: Male

DRUGS (5)
  1. IMIPENEM AND CILASTATIN [Suspect]
     Active Substance: CILASTATIN SODIUM\IMIPENEM
     Indication: ATYPICAL MYCOBACTERIAL INFECTION
     Dosage: 500 MG, QID
     Route: 065
  2. CEFOXITIN [Suspect]
     Active Substance: CEFOXITIN SODIUM
     Indication: ATYPICAL MYCOBACTERIAL INFECTION
     Dosage: 3 G, QID
     Route: 065
  3. LINEZOLID. [Suspect]
     Active Substance: LINEZOLID
     Indication: ATYPICAL MYCOBACTERIAL INFECTION
     Dosage: 600 MG, BID
     Route: 065
  4. AMIKACIN. [Suspect]
     Active Substance: AMIKACIN
     Indication: ATYPICAL MYCOBACTERIAL INFECTION
     Dosage: 10 MG, QD
     Route: 065
  5. CLARITHROMYCIN. [Suspect]
     Active Substance: CLARITHROMYCIN
     Indication: ATYPICAL MYCOBACTERIAL INFECTION
     Dosage: 500 MG, BID
     Route: 065

REACTIONS (3)
  - Deafness neurosensory [Recovered/Resolved]
  - Rash maculo-papular [Recovered/Resolved]
  - Thrombocytopenia [Recovered/Resolved]
